FAERS Safety Report 19156726 (Version 1)
Quarter: 2021Q2

REPORT INFORMATION
  Report Type: Spontaneous
  Country: PL (occurrence: PL)
  Receive Date: 20210420
  Receipt Date: 20210420
  Transmission Date: 20210717
  Serious: Yes (Hospitalization, Other)
  Sender: FDA-Public Use
  Company Number: PL-AUROBINDO-AUR-APL-2021-015753

PATIENT
  Sex: Male

DRUGS (14)
  1. SACUBITRIL;VALSARTAN [Suspect]
     Active Substance: SACUBITRIL\VALSARTAN
     Dosage: UNK (2X 49/51 MG)
     Route: 065
     Dates: start: 202006
  2. METOPROLOL. [Suspect]
     Active Substance: METOPROLOL
     Indication: CARDIAC FAILURE
     Dosage: 150 MILLIGRAM
     Route: 065
  3. AMIODARONE [Suspect]
     Active Substance: AMIODARONE
     Indication: CARDIAC FAILURE
     Dosage: UNK
     Route: 065
     Dates: start: 201808
  4. SACUBITRIL;VALSARTAN [Suspect]
     Active Substance: SACUBITRIL\VALSARTAN
     Dosage: UNK (2X 97/103 MG)
     Route: 065
     Dates: start: 201911
  5. SACUBITRIL;VALSARTAN [Suspect]
     Active Substance: SACUBITRIL\VALSARTAN
     Dosage: UNK (2X 24/26 MG)
     Route: 065
     Dates: start: 201903
  6. SACUBITRIL;VALSARTAN [Suspect]
     Active Substance: SACUBITRIL\VALSARTAN
     Indication: CARDIAC FAILURE
     Dosage: UNK (2X 49/51 MG)
     Route: 065
     Dates: start: 201905
  7. SORBIFER DURULES [FERROUS SULFATE] [Suspect]
     Active Substance: FERROUS SULFATE
     Indication: CARDIAC FAILURE
     Dosage: UNK
     Route: 065
  8. ALLOPURINOL. [Suspect]
     Active Substance: ALLOPURINOL
     Indication: CARDIAC FAILURE
     Dosage: 100 MILLIGRAM
     Route: 065
  9. PANTOPRAZOLE [Suspect]
     Active Substance: PANTOPRAZOLE
     Indication: CARDIAC FAILURE
     Dosage: 40 MILLIGRAM
     Route: 065
  10. ATORVASTATIN [Suspect]
     Active Substance: ATORVASTATIN
     Indication: CARDIAC FAILURE
     Dosage: 40 MILLIGRAM
     Route: 065
  11. WARFARIN [Suspect]
     Active Substance: WARFARIN
     Indication: CARDIAC FAILURE
     Dosage: UNK
     Route: 065
  12. BISOPROLOL [Suspect]
     Active Substance: BISOPROLOL
     Indication: CARDIAC FAILURE
     Dosage: 5 MILLIGRAM
     Route: 065
  13. RAMIPRIL. [Suspect]
     Active Substance: RAMIPRIL
     Indication: CARDIAC FAILURE
     Dosage: 10 MILLIGRAM
     Route: 065
  14. TORASEMIDE [Suspect]
     Active Substance: TORSEMIDE
     Indication: CARDIAC FAILURE
     Dosage: 10 MILLIGRAM
     Route: 065

REACTIONS (15)
  - Cardiac failure [Unknown]
  - Asthenia [Unknown]
  - Normocytic anaemia [Unknown]
  - Cardiac ventricular disorder [Unknown]
  - Renal failure [Unknown]
  - Cardiac failure chronic [Unknown]
  - Atrial fibrillation [Unknown]
  - Hyperkalaemia [Unknown]
  - Peripheral arterial occlusive disease [Unknown]
  - Arrhythmia [Unknown]
  - Hyperthyroidism [Unknown]
  - Hypotension [Unknown]
  - Atrial flutter [Unknown]
  - Ejection fraction decreased [Unknown]
  - Cardiac dysfunction [Unknown]

NARRATIVE: CASE EVENT DATE: 2018
